FAERS Safety Report 7206605-7 (Version None)
Quarter: 2010Q4

REPORT INFORMATION
  Report Type: 
  Country: None (occurrence: None)
  Receive Date: 20101217
  Receipt Date: 20101206
  Transmission Date: 20110411
  Serious: Yes (Other)
  Sender: FDA-Public Use
  Company Number: 008803

PATIENT
  Sex: Female

DRUGS (4)
  1. KEPPRA [Suspect]
     Indication: EPILEPSY
     Dosage: (2500 MG) (750 MG QID)
     Dates: end: 20091130
  2. KEPPRA [Suspect]
     Indication: EPILEPSY
     Dosage: (2500 MG) (750 MG QID)
     Dates: start: 20091201
  3. LEVETIRACETAM [Suspect]
     Indication: EPILEPSY
     Dosage: (250 MG)
     Dates: start: 20091101
  4. PRENATAL VITAMINS /01549301/ [Concomitant]

REACTIONS (7)
  - ABDOMINAL PAIN LOWER [None]
  - CONSTIPATION [None]
  - HEADACHE [None]
  - INSOMNIA [None]
  - NAUSEA [None]
  - UPPER RESPIRATORY TRACT INFECTION [None]
  - VAGINAL HAEMORRHAGE [None]
